FAERS Safety Report 7765643-6 (Version None)
Quarter: 2011Q3

REPORT INFORMATION
  Report Type: 
  Country: None (occurrence: None)
  Receive Date: 20110906
  Receipt Date: 20110506
  Transmission Date: 20111222
  Serious: No
  Sender: FDA-Public Use
  Company Number: 201103018

PATIENT
  Age: 63 Year
  Sex: Female

DRUGS (8)
  1. MIACALCIN (CALCITOMIN, SALMON) [Concomitant]
  2. PREMPRO [Concomitant]
  3. ASPIRIN [Concomitant]
  4. LIPITOR [Concomitant]
  5. FISH OIL (FISH OIL) [Concomitant]
  6. XIAFLEX [Suspect]
     Indication: DUPUYTREN'S CONTRACTURE
     Dosage: 0.58 MG, 1 IN 1 D, INTRALESIONAL
     Route: 026
     Dates: start: 20110303, end: 20110303
  7. XYZAL [Concomitant]
  8. NADALOL (NADOLOL) [Concomitant]

REACTIONS (2)
  - OEDEMA PERIPHERAL [None]
  - CONTUSION [None]
